FAERS Safety Report 18419212 (Version 1)
Quarter: 2020Q4

REPORT INFORMATION
  Report Type: Spontaneous
  Country: BR (occurrence: BR)
  Receive Date: 20201023
  Receipt Date: 20201023
  Transmission Date: 20210114
  Serious: Yes (Other)
  Sender: FDA-Public Use
  Company Number: BR-TEVA-2020-BR-1841503

PATIENT
  Age: 73 Year
  Sex: Male

DRUGS (1)
  1. TEVAOXALI [Suspect]
     Active Substance: OXALIPLATIN
     Route: 065

REACTIONS (4)
  - Face oedema [Recovered/Resolved]
  - Hyperaemia [Recovered/Resolved]
  - Pruritus [Recovered/Resolved]
  - Confusional state [Recovered/Resolved]

NARRATIVE: CASE EVENT DATE: 20200701
